FAERS Safety Report 7232549-0 (Version None)
Quarter: 2011Q1

REPORT INFORMATION
  Report Type: 
  Country: None (occurrence: None)
  Receive Date: 20110107
  Receipt Date: 20101227
  Transmission Date: 20110831
  Serious: Yes (Other)
  Sender: FDA-Public Use
  Company Number: 008823

PATIENT
  Age: 13 Year
  Sex: Female
  Weight: 59 kg

DRUGS (3)
  1. LEVETIRACETAM [Concomitant]
  2. TRILEPTAL [Concomitant]
  3. LACOSAMIDE [Suspect]
     Indication: CONVULSION
     Dosage: (200 MG BID ORAL), (200 MG BID INTRAVENOUS (NOT OTHERWISE SPECIFIED) )
     Route: 048
     Dates: start: 20100219

REACTIONS (1)
  - BRADYCARDIA [None]
